FAERS Safety Report 23126671 (Version 1)
Quarter: 2023Q4

REPORT INFORMATION
  Report Type: Report from Study
  Country: CA (occurrence: CA)
  Receive Date: 20231030
  Receipt Date: 20231030
  Transmission Date: 20240110
  Serious: Yes (Other)
  Sender: FDA-Public Use
  Company Number: CA-BAUSCH-BL-2023-011472

PATIENT
  Sex: Female
  Weight: 88.435 kg

DRUGS (2)
  1. CONTRAVE [Suspect]
     Active Substance: BUPROPION HYDROCHLORIDE\NALTREXONE HYDROCHLORIDE
     Indication: Weight control
     Dosage: 90/8 MG, (1 DOSAGE FORMS,1 IN 24 HR)
     Route: 048
     Dates: start: 202305, end: 2023
  2. CONTRAVE [Suspect]
     Active Substance: BUPROPION HYDROCHLORIDE\NALTREXONE HYDROCHLORIDE
     Dosage: 90/8 MG, 2 TABS/DAY (1 DOSAGE FORMS,1 IN 12 HR)
     Route: 048
     Dates: start: 20230711

REACTIONS (7)
  - Pancreatic disorder [Not Recovered/Not Resolved]
  - Vitamin B12 abnormal [Not Recovered/Not Resolved]
  - Migraine [Recovered/Resolved]
  - Dizziness [Recovered/Resolved]
  - Inability to afford medication [Unknown]
  - Treatment noncompliance [Unknown]
  - Intentional product use issue [Unknown]

NARRATIVE: CASE EVENT DATE: 20230101
